FAERS Safety Report 16063476 (Version 2)
Quarter: 2019Q1

REPORT INFORMATION
  Report Type: Report from Study
  Country: US (occurrence: US)
  Receive Date: 20190312
  Receipt Date: 20190318
  Transmission Date: 20190418
  Serious: Yes (Death, Hospitalization)
  Sender: FDA-Public Use
  Company Number: US-EXELIXIS-CABO-19019304

PATIENT
  Sex: Male

DRUGS (10)
  1. VITAMIN D [Concomitant]
     Active Substance: CHOLECALCIFEROL
  2. ASPIRIN. [Concomitant]
     Active Substance: ASPIRIN
  3. XARELTO [Concomitant]
     Active Substance: RIVAROXABAN
  4. FUROSEMIDE. [Concomitant]
     Active Substance: FUROSEMIDE
  5. CABOMETYX [Suspect]
     Active Substance: CABOZANTINIB S-MALATE
     Indication: RENAL CELL CARCINOMA
     Dosage: 60 MG, QD
     Route: 048
     Dates: start: 20180828
  6. TAMSULOSIN [Concomitant]
     Active Substance: TAMSULOSIN
  7. TOPROL XL [Concomitant]
     Active Substance: METOPROLOL SUCCINATE
  8. LISINOPRIL. [Concomitant]
     Active Substance: LISINOPRIL
  9. SPIRONOLACTONE. [Concomitant]
     Active Substance: SPIRONOLACTONE
  10. GLIPIZIDE. [Concomitant]
     Active Substance: GLIPIZIDE

REACTIONS (6)
  - Urinary tract infection [Fatal]
  - Gastrointestinal haemorrhage [Unknown]
  - Sepsis [Fatal]
  - Syncope [Fatal]
  - Pneumonia aspiration [Fatal]
  - Malignant neoplasm progression [Fatal]
